FAERS Safety Report 17907217 (Version 1)
Quarter: 2020Q2

REPORT INFORMATION
  Report Type: Spontaneous
  Country: DE (occurrence: DE)
  Receive Date: 20200617
  Receipt Date: 20200617
  Transmission Date: 20200714
  Serious: Yes (Other)
  Sender: FDA-Public Use
  Company Number: DE-AMGEN-DEUSP2020092712

PATIENT

DRUGS (2)
  1. PROLIA [Suspect]
     Active Substance: DENOSUMAB
     Indication: OSTEOPOROSIS
     Dosage: 60 MILLIGRAM, Q6MO
     Route: 058
  2. VITAMIN D [COLECALCIFEROL] [Concomitant]
     Active Substance: CHOLECALCIFEROL

REACTIONS (9)
  - Fracture [Unknown]
  - Blood 25-hydroxycholecalciferol decreased [Unknown]
  - Pathological fracture [Unknown]
  - Bone loss [Unknown]
  - Therapeutic product effect decreased [Unknown]
  - Spinal fracture [Unknown]
  - Rebound effect [Unknown]
  - Blood alkaline phosphatase increased [Unknown]
  - Blood alkaline phosphatase decreased [Unknown]
